FAERS Safety Report 10365909 (Version 1)
Quarter: 2014Q1

REPORT INFORMATION
  Report Type: Spontaneous
  Country: US (occurrence: None)
  Receive Date: 20140306
  Receipt Date: 20140306
  Transmission Date: 20141002
  Serious: Yes (Hospitalization)
  Sender: FDA-Public Use
  Company Number: 163-21880-13022462

PATIENT
  Age: 73 Year
  Sex: Male
  Weight: 63.5 kg

DRUGS (12)
  1. REVLIMID [Suspect]
     Indication: PLASMA CELL MYELOMA
     Route: 048
     Dates: start: 20130122
  2. ACYCLOVIR (ACICLOVIR) (CAPSULES) [Concomitant]
  3. AMLODIPINE BESYLATE (UNKNOWN) [Concomitant]
  4. ATORVASTATIN CALCIUM (UNKNOWN) [Concomitant]
  5. BACTRIM DS (UNKNOWN) [Concomitant]
  6. CALCIUM (UNKNOWN) [Concomitant]
  7. CYTRA-2 (UNKNOWN) [Concomitant]
  8. FOLIC ACID (UNKNOWN) [Concomitant]
  9. MAGNESIUM (UNKNOWN) [Concomitant]
  10. PANTOPRAZOLE SODIUM (UNKNOWN) [Concomitant]
  11. CARVEDILOL (UNKNOWN) [Concomitant]
  12. QUETIAPINE FUMARATE (UNKNOWN) [Concomitant]

REACTIONS (4)
  - Diarrhoea [None]
  - Local swelling [None]
  - Swollen tongue [None]
  - Lip swelling [None]
